FAERS Safety Report 5218787-7 (Version None)
Quarter: 2007Q1

REPORT INFORMATION
  Report Type: 
  Country: None (occurrence: None)
  Receive Date: 20070123
  Receipt Date: 20061130
  Transmission Date: 20070707
  Serious: Yes (Hospitalization)
  Sender: FDA-Public Use
  Company Number: 06-ADE-SU-0029-ACT

PATIENT
  Age: 41 Year
  Sex: Female

DRUGS (2)
  1. H P ACTHAR [Suspect]
     Indication: MULTIPLE SCLEROSIS
     Dosage: 80 U IM QD
     Route: 030
     Dates: start: 20061125, end: 20061129
  2. AVONEX [Concomitant]

REACTIONS (10)
  - BODY TEMPERATURE INCREASED [None]
  - DRUG EFFECT DECREASED [None]
  - DRUG INEFFECTIVE [None]
  - INJECTION SITE CELLULITIS [None]
  - INJECTION SITE REACTION [None]
  - LOCALISED INFECTION [None]
  - MUSCLE SPASMS [None]
  - MYALGIA [None]
  - NUCLEAR MAGNETIC RESONANCE IMAGING ABNORMAL [None]
  - WHITE BLOOD CELL COUNT INCREASED [None]
